FAERS Safety Report 10151362 (Version 1)
Quarter: 2014Q2

REPORT INFORMATION
  Report Type: Spontaneous
  Country: US (occurrence: US)
  Receive Date: 20140502
  Receipt Date: 20140502
  Transmission Date: 20141212
  Serious: No
  Sender: FDA-Public Use
  Company Number: US-ASTRAZENECA-2013SE71822

PATIENT
  Age: 39 Year
  Sex: Female

DRUGS (2)
  1. PRILOSEC OTC [Suspect]
     Route: 048
     Dates: start: 20130916, end: 20130921
  2. ANALGESICS [Concomitant]
     Dosage: UNKNOWN

REACTIONS (2)
  - Haematochezia [Unknown]
  - Rectal haemorrhage [Unknown]
